FAERS Safety Report 5102032-7 (Version None)
Quarter: 2006Q3

REPORT INFORMATION
  Report Type: 
  Country: None (occurrence: None)
  Receive Date: 20060731
  Receipt Date: 20060511
  Transmission Date: 20061208
  Serious: No
  Sender: FDA-Public Use
  Company Number: 2006PV013653

PATIENT
  Age: 60 Year
  Sex: Female
  Weight: 77.5651 kg

DRUGS (6)
  1. BYETTA [Suspect]
     Indication: DIABETES MELLITUS NON-INSULIN-DEPENDENT
     Dosage: 10 MCG;BID; SC
     Route: 058
     Dates: start: 20051201, end: 20060401
  2. BYETTA [Suspect]
     Indication: DIABETES MELLITUS NON-INSULIN-DEPENDENT
     Dosage: 10 MCG;BID; SC
     Route: 058
     Dates: start: 20060401
  3. NOVOLOG [Concomitant]
  4. LANTUS [Concomitant]
  5. PRANDIN [Concomitant]
  6. GLYSET [Concomitant]

REACTIONS (9)
  - BLOOD GLUCOSE DECREASED [None]
  - BLOOD GLUCOSE INCREASED [None]
  - DIARRHOEA [None]
  - HEADACHE [None]
  - INJECTION SITE BRUISING [None]
  - PYREXIA [None]
  - SEASONAL ALLERGY [None]
  - TONGUE DISORDER [None]
  - TREMOR [None]
